FAERS Safety Report 6371406-9 (Version None)
Quarter: 2009Q3

REPORT INFORMATION
  Report Type: 
  Country: None (occurrence: None)
  Receive Date: 20090923
  Receipt Date: 20090713
  Transmission Date: 20100115
  Serious: Yes (Hospitalization, Other)
  Sender: FDA-Public Use
  Company Number: US-ASTRAZENECA-2007UW09696

PATIENT
  Age: 277 Month
  Sex: Female
  Weight: 81.2 kg

DRUGS (14)
  1. SEROQUEL [Suspect]
     Indication: BIPOLAR DISORDER
     Dosage: 25 MG, 75 MG AND 100 MG
     Route: 048
     Dates: start: 20030101
  2. PROTONIX [Concomitant]
     Dosage: 40 MG TWO TABLETS DAILY
     Dates: start: 20040510
  3. WELLBUTRIN XL [Concomitant]
     Indication: DEPRESSION
     Dates: start: 20040510
  4. SUBOXONE [Concomitant]
     Indication: CHEST DISCOMFORT
     Dosage: 8 MG HALF TABLET TWO TIMES A DAY
     Dates: start: 20040305
  5. ZANTAC [Concomitant]
     Dates: start: 20040305
  6. NULEV [Concomitant]
     Dates: start: 20040305
  7. PHENERGAN [Concomitant]
     Indication: NAUSEA
     Dates: start: 20040305
  8. ORTHO TRI-CYCLEN [Concomitant]
     Dates: start: 20040305, end: 20070112
  9. CYMBALTA [Concomitant]
     Indication: DEPRESSION
     Route: 048
     Dates: start: 20070112
  10. CYMBALTA [Concomitant]
     Indication: ANXIETY
     Route: 048
     Dates: start: 20070112
  11. ROZEREM [Concomitant]
     Indication: INSOMNIA
     Route: 048
     Dates: start: 20070112
  12. YAZ [Concomitant]
     Indication: CONTRACEPTION
     Dates: start: 20070112
  13. PEPCID [Concomitant]
     Dosage: 40 MG TWO PILLS AT NIGHT
     Dates: start: 20050905
  14. ZOLOFT [Concomitant]
     Dates: start: 20070112

REACTIONS (2)
  - PANCREATITIS [None]
  - PANCREATITIS ACUTE [None]
